FAERS Safety Report 20690218 (Version 2)
Quarter: 2022Q4

REPORT INFORMATION
  Report Type: Spontaneous
  Country: CH (occurrence: CH)
  Receive Date: 20220408
  Receipt Date: 20221018
  Transmission Date: 20230113
  Serious: Yes (Life-Threatening, Hospitalization, Other)
  Sender: FDA-Public Use
  Company Number: None

PATIENT
  Age: 79 Year
  Sex: Male

DRUGS (29)
  1. PEMBROLIZUMAB [Suspect]
     Active Substance: PEMBROLIZUMAB
     Indication: Lung adenocarcinoma
     Dosage: D1, CYCLE 1
     Route: 042
     Dates: start: 20220301, end: 20220301
  2. PEMBROLIZUMAB [Suspect]
     Active Substance: PEMBROLIZUMAB
     Dosage: D1, CYCLE 1
     Route: 042
     Dates: start: 20220322, end: 20220322
  3. PEMBROLIZUMAB [Suspect]
     Active Substance: PEMBROLIZUMAB
     Dosage: D1, CYCLE 1
     Route: 042
     Dates: start: 20220411, end: 20220411
  4. PEMBROLIZUMAB [Suspect]
     Active Substance: PEMBROLIZUMAB
     Dosage: D1, CYCLE 1
     Route: 042
     Dates: start: 20220502, end: 20220502
  5. PEMBROLIZUMAB [Suspect]
     Active Substance: PEMBROLIZUMAB
     Dosage: D1, CYCLE 1
     Route: 042
     Dates: start: 20220531, end: 20220531
  6. PEMBROLIZUMAB [Suspect]
     Active Substance: PEMBROLIZUMAB
     Dosage: D1, CYCLE 1
     Route: 042
     Dates: start: 20220601, end: 20220601
  7. CARBOPLATIN [Suspect]
     Active Substance: CARBOPLATIN
     Indication: Lung adenocarcinoma
     Dosage: D1, CYCLE 1
     Route: 042
     Dates: start: 20220301, end: 20220301
  8. CARBOPLATIN [Suspect]
     Active Substance: CARBOPLATIN
     Dosage: D1, CYCLE 1
     Route: 042
     Dates: start: 20220322, end: 20220322
  9. CARBOPLATIN [Suspect]
     Active Substance: CARBOPLATIN
     Dosage: D1, CYCLE 1
     Route: 042
     Dates: start: 20220411, end: 20220411
  10. CARBOPLATIN [Suspect]
     Active Substance: CARBOPLATIN
     Dosage: D1, CYCLE 1
     Route: 042
     Dates: start: 20220502, end: 20220502
  11. CARBOPLATIN [Suspect]
     Active Substance: CARBOPLATIN
     Dosage: D1, CYCLE 1
     Route: 042
     Dates: start: 20220531, end: 20220531
  12. PEMETREXED [Suspect]
     Active Substance: PEMETREXED
     Indication: Lung adenocarcinoma
     Dosage: D1, CYCLE 1
     Route: 042
     Dates: start: 20220301, end: 20220301
  13. PEMETREXED [Suspect]
     Active Substance: PEMETREXED
     Dosage: D1, CYCLE 1
     Route: 042
     Dates: start: 20220322, end: 20220322
  14. PEMETREXED [Suspect]
     Active Substance: PEMETREXED
     Dosage: D1, CYCLE 1
     Route: 042
     Dates: start: 20220411, end: 20220411
  15. PEMETREXED [Suspect]
     Active Substance: PEMETREXED
     Dosage: D1, CYCLE 1
     Route: 042
     Dates: start: 20220502, end: 20220502
  16. PEMETREXED [Suspect]
     Active Substance: PEMETREXED
     Dosage: D1, CYCLE 1
     Route: 042
     Dates: start: 20220531, end: 20220531
  17. PEMETREXED [Suspect]
     Active Substance: PEMETREXED
     Dosage: D1, CYCLE 1
     Route: 042
     Dates: start: 20220601, end: 20220601
  18. EDOXABAN [Concomitant]
     Active Substance: EDOXABAN
     Dosage: UNK
  19. ASPIRIN [Concomitant]
     Active Substance: ASPIRIN
     Dosage: UNK
  20. DIOVAN [Concomitant]
     Active Substance: VALSARTAN
     Dosage: UNK
  21. METOPROLOL SUCCINATE [Concomitant]
     Active Substance: METOPROLOL SUCCINATE
     Dosage: UNK
  22. DIGOXIN [Concomitant]
     Active Substance: DIGOXIN
     Dosage: UNK
  23. ATORVASTATIN [Concomitant]
     Active Substance: ATORVASTATIN
     Dosage: UNK
  24. JANUMET [Concomitant]
     Active Substance: METFORMIN HYDROCHLORIDE\SITAGLIPTIN PHOSPHATE
     Dosage: UNK
  25. DAPAGLIFLOZIN [Concomitant]
     Active Substance: DAPAGLIFLOZIN
     Dosage: UNK
  26. DUTASTERIDE\TAMSULOSIN [Concomitant]
     Active Substance: DUTASTERIDE\TAMSULOSIN
     Dosage: UNK
  27. TORSEMIDE [Concomitant]
     Active Substance: TORSEMIDE
     Dosage: UNK
  28. NEXIUM [Concomitant]
     Active Substance: ESOMEPRAZOLE MAGNESIUM
     Dosage: UNK
  29. FOLIC ACID [Concomitant]
     Active Substance: FOLIC ACID
     Dosage: UNK

REACTIONS (8)
  - Confusional state [Recovered/Resolved]
  - Pancytopenia [Recovered/Resolved]
  - Agranulocytosis [Recovered/Resolved]
  - Bicytopenia [Not Recovered/Not Resolved]
  - Pancytopenia [Recovered/Resolved]
  - Pancytopenia [Recovered/Resolved]
  - Agranulocytosis [Recovered/Resolved]
  - Agranulocytosis [Recovered/Resolved]

NARRATIVE: CASE EVENT DATE: 20220308
